FAERS Safety Report 9705240 (Version 2)
Quarter: 2013Q4

REPORT INFORMATION
  Report Type: Report from Study
  Country: US (occurrence: US)
  Receive Date: 20131122
  Receipt Date: 20131226
  Transmission Date: 20140711
  Serious: Yes (Life-Threatening, Hospitalization)
  Sender: FDA-Public Use
  Company Number: US-BRISTOL-MYERS SQUIBB COMPANY-19836568

PATIENT
  Age: 60 Year
  Sex: Female
  Weight: 106 kg

DRUGS (25)
  1. NIVOLUMAB [Suspect]
     Indication: METASTATIC MALIGNANT MELANOMA
     Dosage: LAST DOSE:07NOV13?DOSE:UNKNOWN
     Dates: start: 20131009
  2. IPILIMUMAB [Suspect]
     Indication: METASTATIC MALIGNANT MELANOMA
     Dosage: LAST DOSE:07NOV13?DOSE:UNKNOWN
     Dates: start: 20131009
  3. BLINDED: PLACEBO [Suspect]
     Indication: METASTATIC MALIGNANT MELANOMA
     Dosage: LAST DOSE:07NOV13?DOSE:UNKNOWN
     Dates: start: 20131009
  4. TRIAMCINOLONE ACETONIDE CREAM [Concomitant]
     Dates: start: 20131107
  5. DIPHENHYDRAMINE [Concomitant]
     Dates: start: 2007
  6. FEXOFENADINE HCL [Concomitant]
     Dates: start: 201303
  7. IBUPROFEN [Concomitant]
     Dates: start: 1996
  8. LEVOXYL [Concomitant]
     Dates: start: 2000
  9. MELATONIN [Concomitant]
     Dates: start: 201301
  10. OXYMETAZOLINE [Concomitant]
     Dates: start: 2007
  11. ST JOHN WORT [Concomitant]
     Dates: start: 201209
  12. VITAMIN B6 [Concomitant]
     Dates: start: 20130625
  13. VITAMIN D3 [Concomitant]
     Dates: start: 20130625
  14. EQUATE [Concomitant]
     Dates: start: 201303
  15. CETRIZINE [Concomitant]
     Dates: start: 201303
  16. VITAMIN A [Concomitant]
     Dates: start: 20130725
  17. CHROMIUM [Concomitant]
     Dates: start: 20130924
  18. ALBUTEROL SULFATE [Concomitant]
     Dates: start: 20130318
  19. AZITHROMYCIN [Concomitant]
     Dosage: THERAPY DATES:15OCT13-15OCT13?16OCT-ONG
     Dates: start: 20131015
  20. ROBITUSSIN DM [Concomitant]
     Dosage: ROBITUSSIN COUGH CONGESTION DM
     Dates: start: 20131014
  21. TUSSIN CF COUGH [Concomitant]
     Dates: start: 20131014
  22. ROBITUSSIN [Concomitant]
     Dates: start: 20131014
  23. ALLERGY SHOTS [Concomitant]
     Dosage: ALLERGY RELIEF
     Dates: start: 20131014
  24. ATARAX [Concomitant]
     Dates: start: 20131107
  25. CEVIMELINE HCL [Concomitant]
     Dates: start: 20130606

REACTIONS (1)
  - Diabetic ketoacidosis [Recovering/Resolving]
